FAERS Safety Report 17487922 (Version 7)
Quarter: 2021Q1

REPORT INFORMATION
  Report Type: Spontaneous
  Country: US (occurrence: US)
  Receive Date: 20200303
  Receipt Date: 20210120
  Transmission Date: 20210419
  Serious: No
  Sender: FDA-Public Use
  Company Number: US-PFIZER INC-2019033790

PATIENT
  Age: 65 Year
  Sex: Female
  Weight: 75 kg

DRUGS (5)
  1. LYRICA [Suspect]
     Active Substance: PREGABALIN
     Indication: PAIN
     Dosage: 150 MG, 2X/DAY (TAKE 1 CAPSULE TWICE A DAY BY ORAL ROUTE)
     Route: 048
  2. LYRICA [Suspect]
     Active Substance: PREGABALIN
     Indication: PAIN IN EXTREMITY
     Dosage: 100 MG, 2X/DAY (TAKE 1 CAPSULE TWICE A DAY BY ORAL ROUTE)
     Route: 048
  3. LYRICA [Suspect]
     Active Substance: PREGABALIN
     Dosage: 900 MG, DAILY (TAKE 1 IN THE AM, 2 IN THE AFTERNOON, AND 3 AT BEDTIME)
     Route: 048
  4. LYRICA [Suspect]
     Active Substance: PREGABALIN
     Dosage: 1050 MG, DAILY (150 MG, TAKE 2 IN THE AM, 2 IN THE AFTERNOON AND 3 AT BEDTIME. NTE } 7 PER DAY)
     Route: 048
     Dates: start: 2017
  5. LYRICA [Suspect]
     Active Substance: PREGABALIN
     Dosage: 750 MG, DAILY (2 CAPSULES BY MOUTH TWICE A DAY AND 3 CAPSULES AT BEDTIME)
     Route: 048

REACTIONS (5)
  - Weight increased [Unknown]
  - Increased appetite [Unknown]
  - Visual acuity reduced [Unknown]
  - Prescribed overdose [Unknown]
  - Therapeutic product effect incomplete [Unknown]

NARRATIVE: CASE EVENT DATE: 2017
